FAERS Safety Report 13863639 (Version 1)
Quarter: 2017Q3

REPORT INFORMATION
  Report Type: Spontaneous
  Country: US (occurrence: US)
  Receive Date: 20170814
  Receipt Date: 20170814
  Transmission Date: 20171127
  Serious: No
  Sender: FDA-Public Use
  Company Number: US-PFIZER INC-2017154194

PATIENT
  Age: 58 Year
  Sex: Female
  Weight: 97.7 kg

DRUGS (7)
  1. INVOKANA [Concomitant]
     Active Substance: CANAGLIFLOZIN
     Indication: DIABETES MELLITUS
     Dosage: UNK
     Dates: end: 201707
  2. METFORMIN [Concomitant]
     Active Substance: METFORMIN HYDROCHLORIDE
     Indication: DIABETES MELLITUS
     Dosage: UNK
     Dates: end: 201707
  3. LYRICA [Suspect]
     Active Substance: PREGABALIN
     Indication: SCIATICA
     Dosage: 75 MG, 2X/DAY
     Route: 048
     Dates: start: 20170404
  4. LYRICA [Suspect]
     Active Substance: PREGABALIN
     Indication: BACK PAIN
     Dosage: 75 MG, 2X/DAY (IN MORNING AND AT NIGHT)
     Route: 048
     Dates: start: 201606
  5. LYRICA [Suspect]
     Active Substance: PREGABALIN
     Indication: PAIN
  6. INVOKAMET XR [Concomitant]
     Active Substance: CANAGLIFLOZIN\METFORMIN HYDROCHLORIDE
     Indication: DIABETES MELLITUS
     Dosage: UNK [CANAGLIFLOZIN HEMIHYDRATE: 150MG]/[METFORMIN HYDROCHLORIDE: 1000MG]
     Dates: start: 20170725
  7. LYRICA [Suspect]
     Active Substance: PREGABALIN
     Indication: NEUROPATHY PERIPHERAL

REACTIONS (3)
  - Intentional product misuse [Unknown]
  - Pain [Unknown]
  - Gait disturbance [Unknown]

NARRATIVE: CASE EVENT DATE: 201707
